FAERS Safety Report 18615398 (Version 6)
Quarter: 2021Q3

REPORT INFORMATION
  Report Type: Report from Study
  Country: US (occurrence: US)
  Receive Date: 20201215
  Receipt Date: 20210910
  Transmission Date: 20211014
  Serious: No
  Sender: FDA-Public Use
  Company Number: NVSC2020US329353

PATIENT
  Sex: Female

DRUGS (2)
  1. KESIMPTA [Suspect]
     Active Substance: OFATUMUMAB
     Indication: SECONDARY PROGRESSIVE MULTIPLE SCLEROSIS
     Dosage: 20 MG
     Route: 058
  2. KESIMPTA [Suspect]
     Active Substance: OFATUMUMAB
     Indication: RELAPSING-REMITTING MULTIPLE SCLEROSIS
     Dosage: 20 MG, QMO
     Route: 058

REACTIONS (8)
  - Fatigue [Recovering/Resolving]
  - Nausea [Unknown]
  - Muscle spasticity [Unknown]
  - Injection site inflammation [Recovered/Resolved]
  - Herpes zoster [Recovered/Resolved]
  - Pruritus [Unknown]
  - Injection site pruritus [Recovered/Resolved]
  - Headache [Unknown]
